FAERS Safety Report 9300895 (Version 2)
Quarter: 2013Q2

REPORT INFORMATION
  Report Type: Spontaneous
  Country: NL (occurrence: NL)
  Receive Date: 20130521
  Receipt Date: 20130528
  Transmission Date: 20140414
  Serious: Yes (Other)
  Sender: FDA-Public Use
  Company Number: NL-ELI_LILLY_AND_COMPANY-NL201305003777

PATIENT
  Sex: Male

DRUGS (1)
  1. ZYPADHERA [Suspect]
     Dosage: 300 MG, UNKNOWN
     Route: 030

REACTIONS (4)
  - Dysstasia [Unknown]
  - Asthenia [Unknown]
  - Confusional state [Unknown]
  - Somnolence [Unknown]
